FAERS Safety Report 13189203 (Version 1)
Quarter: 2017Q1

REPORT INFORMATION
  Report Type: Other
  Country: CA (occurrence: CA)
  Receive Date: 20170206
  Receipt Date: 20170206
  Transmission Date: 20170428
  Serious: Yes (Hospitalization)
  Sender: FDA-Public Use
  Company Number: CA-DUCHESNAY INC.-1062778

PATIENT
  Age: 37 Year
  Sex: Female
  Weight: 106 kg

DRUGS (6)
  1. ESOMEPRAZOL MAGNESIUM TRIHYDRATE/NAPROXEN [Suspect]
     Active Substance: ESOMEPRAZOLE MAGNESIUM\NAPROXEN
  2. LABETALOL [Concomitant]
     Active Substance: LABETALOL\LABETALOL HYDROCHLORIDE
     Route: 048
  3. TYLENOL [Suspect]
     Active Substance: ACETAMINOPHEN
  4. OXYCODONE [Concomitant]
     Active Substance: OXYCODONE
     Route: 048
  5. DICLEGIS [Suspect]
     Active Substance: DOXYLAMINE SUCCINATE\PYRIDOXINE HYDROCHLORIDE
     Route: 048
  6. REMICADE [Suspect]
     Active Substance: INFLIXIMAB
     Route: 042

REACTIONS (5)
  - Premature delivery [Recovered/Resolved]
  - Caesarean section [Recovered/Resolved]
  - Dyspnoea [Recovered/Resolved]
  - Maternal exposure timing unspecified [None]
  - Pre-eclampsia [Recovered/Resolved]
